FAERS Safety Report 26149783 (Version 1)
Quarter: 2025Q4

REPORT INFORMATION
  Report Type: Spontaneous
  Country: US (occurrence: None)
  Receive Date: 20251212
  Receipt Date: 20251212
  Transmission Date: 20260118
  Serious: Yes (Hospitalization)
  Sender: FDA-CTU
  Company Number: None

PATIENT
  Age: 51 Year
  Sex: Male
  Weight: 54 kg

DRUGS (1)
  1. LUTETIUM OXODOTREOTIDE LU-177 [Suspect]
     Active Substance: LUTETIUM OXODOTREOTIDE LU-177
     Dosage: OTHER QUANTITY : 200 MCI;?OTHER FREQUENCY : DISCONTINUED DUE TO DISEASE PROGRESSION ;
     Dates: end: 20250911

REACTIONS (3)
  - Obstruction gastric [None]
  - Device dislocation [None]
  - Disease progression [None]

NARRATIVE: CASE EVENT DATE: 20251106
